FAERS Safety Report 14628059 (Version 1)
Quarter: 2018Q1

REPORT INFORMATION
  Report Type: Spontaneous
  Country: US (occurrence: US)
  Receive Date: 20180312
  Receipt Date: 20180312
  Transmission Date: 20180509
  Serious: No
  Sender: FDA-Public Use
  Company Number: US-ALLERGAN-1748623US

PATIENT
  Age: 66 Year
  Sex: Female

DRUGS (4)
  1. ESTRACE [Suspect]
     Active Substance: ESTRADIOL
     Indication: VULVOVAGINAL PAIN
     Dosage: UNK, UNKNOWN
     Route: 067
     Dates: start: 20170517
  2. DESOXIMETASONE. [Concomitant]
     Active Substance: DESOXIMETASONE
     Indication: RASH
     Dosage: UNK, UNKNOWN
     Route: 065
  3. ESTRACE [Suspect]
     Active Substance: ESTRADIOL
     Indication: VULVOVAGINAL DRYNESS
  4. ATORVASTATIN [Concomitant]
     Active Substance: ATORVASTATIN
     Indication: PRODUCT USED FOR UNKNOWN INDICATION
     Dosage: UNK, UNKNOWN
     Route: 065

REACTIONS (5)
  - Bladder irritation [Not Recovered/Not Resolved]
  - Inappropriate schedule of drug administration [Unknown]
  - Drug ineffective [Unknown]
  - Vulvovaginal burning sensation [Unknown]
  - Bladder pain [Not Recovered/Not Resolved]
